FAERS Safety Report 5076822-3 (Version None)
Quarter: 2006Q3

REPORT INFORMATION
  Report Type: 
  Country: None (occurrence: None)
  Receive Date: 20060803
  Receipt Date: 20060720
  Transmission Date: 20061208
  Serious: Yes (Other)
  Sender: FDA-Public Use
  Company Number: 601655

PATIENT
  Age: 4 Week
  Sex: Male

DRUGS (5)
  1. ADVATE (OCTOCOG ALFA) [Suspect]
     Indication: FACTOR VIII DEFICIENCY
     Dosage: 125 IU;3X A DAY;IV
     Route: 042
     Dates: start: 20040101, end: 20041126
  2. CAFFEINE [Concomitant]
  3. FLUCLOXACILLIN [Concomitant]
  4. BENZYLPENICILLIN [Concomitant]
  5. GENTAMICIN [Concomitant]

REACTIONS (1)
  - FACTOR VIII INHIBITION [None]
